FAERS Safety Report 17954204 (Version 1)
Quarter: 2020Q2

REPORT INFORMATION
  Report Type: Spontaneous
  Country: HR (occurrence: HR)
  Receive Date: 20200629
  Receipt Date: 20200629
  Transmission Date: 20200714
  Serious: Yes (Other)
  Sender: FDA-Public Use
  Company Number: HR-US-PROVELL PHARMACEUTICALS LLC-9169826

PATIENT
  Age: 66 Year
  Sex: Female

DRUGS (4)
  1. EUTHYROX [Suspect]
     Active Substance: LEVOTHYROXINE SODIUM
     Indication: HYPOTHYROIDISM
     Dosage: OLD FORMULATION
     Route: 048
     Dates: start: 2000, end: 202001
  2. EUTHYROX [Suspect]
     Active Substance: LEVOTHYROXINE SODIUM
     Dosage: NEW FORMULATION
     Route: 048
     Dates: start: 202001
  3. ATENOLOL. [Concomitant]
     Active Substance: ATENOLOL
     Indication: MICTURITION DISORDER
  4. MISAR                              /00595201/ [Concomitant]
     Active Substance: ALPRAZOLAM
     Indication: PRODUCT USED FOR UNKNOWN INDICATION

REACTIONS (5)
  - Fatigue [Unknown]
  - Arrhythmia [Unknown]
  - Chronic leukaemia [Unknown]
  - Constipation [Unknown]
  - Sluggishness [Unknown]

NARRATIVE: CASE EVENT DATE: 2005
